FAERS Safety Report 17602625 (Version 1)
Quarter: 2020Q1

REPORT INFORMATION
  Report Type: Spontaneous
  Country: FR (occurrence: FR)
  Receive Date: 20200330
  Receipt Date: 20200330
  Transmission Date: 20200409
  Serious: Yes (Death)
  Sender: FDA-Public Use
  Company Number: FR-AUROBINDO-AUR-APL-2020-016224

PATIENT
  Age: 35 Year

DRUGS (1)
  1. BELINOSTAT [Suspect]
     Active Substance: BELINOSTAT
     Indication: ANAPLASTIC LARGE-CELL LYMPHOMA
     Dosage: ONE CYCLE
     Route: 065

REACTIONS (1)
  - Disease progression [Fatal]
